FAERS Safety Report 9044114 (Version 9)
Quarter: 2013Q4

REPORT INFORMATION
  Report Type: Report from Study
  Country: JP (occurrence: JP)
  Receive Date: 20130130
  Receipt Date: 20131015
  Transmission Date: 20140711
  Serious: Yes (Hospitalization, Other)
  Sender: FDA-Public Use
  Company Number: JP-EISAI INC-E7389-03476-CLI-JP

PATIENT
  Age: 46 Year
  Sex: Female
  Weight: 55 kg

DRUGS (4)
  1. E7389 (BOLD) [Suspect]
     Indication: SARCOMA
     Route: 041
     Dates: start: 20120921, end: 20130118
  2. E7389 (BOLD) [Suspect]
     Indication: METASTASES TO LUNG
  3. KETOPROFEN [Concomitant]
     Indication: SPINAL OSTEOARTHRITIS
     Dosage: UNKNOWN
     Route: 065
     Dates: start: 20121012
  4. KETOPROFEN [Concomitant]
     Indication: SPINAL OSTEOARTHRITIS

REACTIONS (1)
  - Tumour embolism [Not Recovered/Not Resolved]
